FAERS Safety Report 24583091 (Version 1)
Quarter: 2024Q4

REPORT INFORMATION
  Report Type: Report from Study
  Country: CA (occurrence: CA)
  Receive Date: 20241106
  Receipt Date: 20241106
  Transmission Date: 20250114
  Serious: Yes (Other)
  Sender: ABBVIE
  Company Number: CA-ABBVIE-5989823

PATIENT
  Age: 43 Year
  Sex: Male

DRUGS (1)
  1. RINVOQ [Suspect]
     Active Substance: UPADACITINIB
     Indication: Colitis ulcerative
     Dosage: LAST ADMIN- 2024
     Route: 048
     Dates: start: 20240514

REACTIONS (2)
  - Colectomy total [Unknown]
  - Ileostomy [Unknown]

NARRATIVE: CASE EVENT DATE: 20240101
